FAERS Safety Report 13743920 (Version 3)
Quarter: 2021Q4

REPORT INFORMATION
  Report Type: Spontaneous
  Country: FR (occurrence: FR)
  Receive Date: 20170712
  Receipt Date: 20211029
  Transmission Date: 20220304
  Serious: Yes (Other)
  Sender: FDA-Public Use
  Company Number: FR-UCBSA-2017026730

PATIENT
  Age: 43 Year
  Sex: Male

DRUGS (42)
  1. KEPPRA [Suspect]
     Active Substance: LEVETIRACETAM
     Indication: Epilepsy
     Dosage: 500 MG, 2X/DAY (BID)
     Route: 048
     Dates: start: 20170422
  2. AMINO ACIDS\DEXTROSE\ELECTROLYTES NOS\SOYBEAN OIL [Suspect]
     Active Substance: AMINO ACIDS\DEXTROSE\ELECTROLYTES NOS\SOYBEAN OIL
     Indication: Parenteral nutrition
     Dosage: 80 ML, HOURLY
     Route: 042
     Dates: start: 2017
  3. CANCIDAS [Suspect]
     Active Substance: CASPOFUNGIN ACETATE
     Indication: Fungal infection
     Dosage: 70 MG, ONCE DAILY (QD)
     Route: 042
     Dates: start: 201703
  4. NEORAL [Suspect]
     Active Substance: CYCLOSPORINE
     Indication: Prophylaxis against transplant rejection
     Dosage: 40 MG, 2X/DAY (BID)
     Route: 048
     Dates: start: 2017, end: 2017
  5. CELLCEPT [Suspect]
     Active Substance: MYCOPHENOLATE MOFETIL\MYCOPHENOLATE MOFETIL HYDROCHLORIDE
     Indication: Prophylaxis against transplant rejection
     Dosage: 1000 MG, 2X/DAY (BID)
     Route: 048
     Dates: start: 2017
  6. SOLU-MEDROL [Suspect]
     Active Substance: METHYLPREDNISOLONE SODIUM SUCCINATE
     Indication: Product used for unknown indication
     Dosage: 160 MG, ONCE DAILY (QD)
     Route: 042
     Dates: start: 2017, end: 20170609
  7. SOLU-MEDROL [Suspect]
     Active Substance: METHYLPREDNISOLONE SODIUM SUCCINATE
     Indication: Product used for unknown indication
  8. EUPANTOL [Suspect]
     Active Substance: PANTOPRAZOLE SODIUM
     Indication: Gastrooesophageal reflux disease
     Dosage: 40 MG, DAILY DOSE
     Route: 042
     Dates: start: 2017
  9. EUPANTOL [Suspect]
     Active Substance: PANTOPRAZOLE SODIUM
     Indication: Gastrooesophageal reflux disease
  10. ACUPAN [Suspect]
     Active Substance: NEFOPAM HYDROCHLORIDE
     Indication: Pain
     Dosage: 20 MG, 4X/DAY (QID)
     Route: 042
     Dates: start: 2017
  11. GAVISCON [Suspect]
     Active Substance: ALUMINUM HYDROXIDE\MAGNESIUM CARBONATE
     Dosage: 1 DF, 3X/DAY (TID) (AS NEEDED)
     Route: 048
     Dates: start: 2017
  12. GAVISCON [Suspect]
     Active Substance: ALUMINUM HYDROXIDE\MAGNESIUM CARBONATE
     Indication: Gastrooesophageal reflux disease
  13. GAVISCON [Suspect]
     Active Substance: ALUMINUM HYDROXIDE\MAGNESIUM CARBONATE
     Indication: Gastrooesophageal reflux disease
  14. BACTRIM [Suspect]
     Active Substance: SULFAMETHOXAZOLE\TRIMETHOPRIM
     Indication: Pneumocystis jirovecii pneumonia
     Dosage: 800 MG, ONCE DAILY (QD)
     Route: 048
     Dates: start: 201703, end: 20170526
  15. PHLOROGLUCINOL [Suspect]
     Active Substance: PHLOROGLUCINOL
     Indication: Abdominal pain
     Dosage: 2 DF, 3X/DAY (TID)
     Route: 048
     Dates: start: 2017
  16. PHLOROGLUCINOL [Suspect]
     Active Substance: PHLOROGLUCINOL
     Indication: Pain
  17. RACECADOTRIL [Suspect]
     Active Substance: RACECADOTRIL
     Indication: Diarrhoea
     Dosage: 200 MG, 3X/DAY (TID)
     Route: 048
     Dates: start: 2017
  18. ACETAMINOPHEN [Suspect]
     Active Substance: ACETAMINOPHEN
     Indication: Pain
     Dosage: 1 G, 3X/DAY (TID)
     Route: 048
     Dates: start: 2017
  19. ACETAMINOPHEN [Suspect]
     Active Substance: ACETAMINOPHEN
     Indication: Pyrexia
  20. URSODIOL [Suspect]
     Active Substance: URSODIOL
     Indication: Product used for unknown indication
     Dosage: 200 MG
     Route: 048
     Dates: start: 20170331
  21. URSODIOL [Suspect]
     Active Substance: URSODIOL
     Indication: Product used for unknown indication
  22. AMIKACIN [Suspect]
     Active Substance: AMIKACIN
     Indication: Product used for unknown indication
     Dosage: UNK
     Route: 042
     Dates: start: 20170403, end: 20170408
  23. AMIKACIN [Suspect]
     Active Substance: AMIKACIN
     Indication: Product used for unknown indication
     Dosage: UNK
     Route: 042
     Dates: start: 20170421, end: 20170424
  24. GANCICLOVIR [Suspect]
     Active Substance: GANCICLOVIR
     Indication: Prophylaxis
     Dosage: UNK
     Route: 042
     Dates: start: 20170330, end: 20170504
  25. VALACYCLOVIR HYDROCHLORIDE [Suspect]
     Active Substance: VALACYCLOVIR HYDROCHLORIDE
     Indication: Prophylaxis
     Dosage: UNK
     Route: 048
     Dates: start: 20170504
  26. CILASTATIN SODIUM\IMIPENEM [Suspect]
     Active Substance: CILASTATIN SODIUM\IMIPENEM
     Indication: Product used for unknown indication
     Dosage: 500 MG, 3X/DAY (TID)
     Route: 042
     Dates: start: 201703, end: 20170403
  27. CILASTATIN SODIUM\IMIPENEM [Suspect]
     Active Substance: CILASTATIN SODIUM\IMIPENEM
     Indication: Product used for unknown indication
  28. LINEZOLID [Suspect]
     Active Substance: LINEZOLID
     Indication: Product used for unknown indication
     Dosage: 600 MG, 2X/DAY (BID)
     Route: 042
     Dates: start: 201703, end: 20170430
  29. LINEZOLID [Suspect]
     Active Substance: LINEZOLID
     Indication: Product used for unknown indication
  30. URAPIDIL [Suspect]
     Active Substance: URAPIDIL
     Indication: Hypertension
     Dosage: 2 MG, HOURLY
     Route: 042
     Dates: start: 201703, end: 20170330
  31. DITROPAN [Suspect]
     Active Substance: OXYBUTYNIN CHLORIDE
     Indication: Product used for unknown indication
     Dosage: 5 MG, 3X/DAY (TID)
     Route: 048
     Dates: start: 2017, end: 20170509
  32. DITROPAN [Suspect]
     Active Substance: OXYBUTYNIN CHLORIDE
     Indication: Product used for unknown indication
  33. SODIUM ALGINATE [Suspect]
     Active Substance: SODIUM ALGINATE
     Dosage: 1 DF, 3X/DAY (TID)
     Route: 048
     Dates: start: 2017
  34. SODIUM ALGINATE [Suspect]
     Active Substance: SODIUM ALGINATE
     Indication: Gastrooesophageal reflux disease
  35. SODIUM ALGINATE [Suspect]
     Active Substance: SODIUM ALGINATE
     Indication: Gastrooesophageal reflux disease
  36. MAGNESIUM ALGINATE [Suspect]
     Active Substance: MAGNESIUM ALGINATE
     Dosage: 1 DF, 3X/DAY (TID)
     Route: 048
     Dates: start: 2017
  37. MAGNESIUM ALGINATE [Suspect]
     Active Substance: MAGNESIUM ALGINATE
     Indication: Gastrooesophageal reflux disease
  38. MAGNESIUM ALGINATE [Suspect]
     Active Substance: MAGNESIUM ALGINATE
     Indication: Gastrooesophageal reflux disease
  39. BISOPROLOL [Concomitant]
     Active Substance: BISOPROLOL
     Indication: Prophylaxis
     Route: 048
  40. TARGOCID [Concomitant]
     Active Substance: TEICOPLANIN
     Indication: Product used for unknown indication
  41. RAMIPRIL [Concomitant]
     Active Substance: RAMIPRIL
     Indication: Prophylaxis against transplant rejection
     Dosage: UNK
     Dates: start: 20170331
  42. AMLODIPINE BESYLATE [Concomitant]
     Active Substance: AMLODIPINE BESYLATE
     Indication: Epilepsy
     Dosage: 1000 MG DAILY DOSE

REACTIONS (3)
  - Pancytopenia [Recovered/Resolved]
  - Pneumocystis jirovecii pneumonia [Unknown]
  - Cellulitis [Unknown]

NARRATIVE: CASE EVENT DATE: 20170401
